FAERS Safety Report 14801928 (Version 1)
Quarter: 2018Q2

REPORT INFORMATION
  Report Type: Spontaneous
  Country: US (occurrence: US)
  Receive Date: 20180424
  Receipt Date: 20180424
  Transmission Date: 20180711
  Serious: No
  Sender: FDA-Public Use
  Company Number: US-PURDUE-USA-2017-0141499

PATIENT
  Sex: Female

DRUGS (1)
  1. OXYCONTIN [Suspect]
     Active Substance: OXYCODONE HYDROCHLORIDE
     Indication: PAIN
     Dosage: 20 MG, SINGLE
     Route: 065

REACTIONS (5)
  - Heart rate increased [Unknown]
  - Nausea [Unknown]
  - Tremor [Unknown]
  - Euphoric mood [Unknown]
  - Anxiety [Unknown]
